FAERS Safety Report 8239998-2 (Version None)
Quarter: 2012Q1

REPORT INFORMATION
  Report Type: 
  Country: None (occurrence: None)
  Receive Date: 20120328
  Receipt Date: 20120319
  Transmission Date: 20120608
  Serious: Yes (Hospitalization, Other)
  Sender: FDA-Public Use
  Company Number: US-BAYER-2011-107424

PATIENT
  Age: 28 Year
  Sex: Female
  Weight: 90.703 kg

DRUGS (9)
  1. AZITHROMYCIN [Concomitant]
     Dosage: 250 MG, UNK
  2. YAZ [Suspect]
     Indication: CONTRACEPTION
     Dosage: UNK
     Dates: start: 20080901, end: 20091001
  3. HYDROCHLOROTHIAZIDE [Concomitant]
  4. METRONIDAZOLE [Concomitant]
     Dosage: UNK
     Route: 067
  5. ZYRTEC [Concomitant]
  6. PRILOSEC [Concomitant]
     Indication: GASTRIC PH DECREASED
     Dosage: UNK
     Dates: start: 20090101
  7. PRISTIQ [Concomitant]
     Dosage: 50 MG, UNK
  8. AMITRIPTYLINE HCL [Concomitant]
     Dosage: 25 MG, UNK
  9. OMEPRAZOLE [Concomitant]

REACTIONS (9)
  - CHOLECYSTITIS CHRONIC [None]
  - POST-TRAUMATIC STRESS DISORDER [None]
  - MAJOR DEPRESSION [None]
  - PAIN [None]
  - BIPOLAR DISORDER [None]
  - EMOTIONAL DISTRESS [None]
  - GALLBLADDER NON-FUNCTIONING [None]
  - PANCREATITIS [None]
  - HEPATIC ENZYME INCREASED [None]
